FAERS Safety Report 7336535-1 (Version None)
Quarter: 2011Q1

REPORT INFORMATION
  Report Type: 
  Country: None (occurrence: None)
  Receive Date: 20110307
  Receipt Date: 20110302
  Transmission Date: 20110831
  Serious: Yes (Hospitalization)
  Sender: FDA-Public Use
  Company Number: BR-ABBOTT-10P-020-0673410-00

PATIENT
  Sex: Female
  Weight: 83 kg

DRUGS (5)
  1. ATENSINA [Concomitant]
     Indication: HYPERTENSION
     Dosage: DAILY WHEN BLOOD PRESSURE INCREASES
     Route: 048
  2. ARFLEX [Concomitant]
     Indication: PAIN
     Route: 048
  3. DORFLEX [Concomitant]
     Indication: PAIN
     Dosage: 1 DAILY AS NECESSARY
     Route: 048
  4. HUMIRA [Suspect]
     Indication: RHEUMATOID ARTHRITIS
     Route: 058
     Dates: start: 20080101
  5. PREDSIM [Concomitant]
     Indication: PAIN
     Route: 048

REACTIONS (13)
  - WEIGHT DECREASED [None]
  - OPEN WOUND [None]
  - DIABETES MELLITUS [None]
  - MUSCULAR WEAKNESS [None]
  - BLOOD SODIUM DECREASED [None]
  - HYPERTENSION [None]
  - BLOOD PRESSURE INCREASED [None]
  - GENERALISED OEDEMA [None]
  - OEDEMA PERIPHERAL [None]
  - ANAEMIA [None]
  - ASTHENIA [None]
  - INSOMNIA [None]
  - NERVOUS SYSTEM DISORDER [None]
